FAERS Safety Report 7250344-3 (Version None)
Quarter: 2011Q1

REPORT INFORMATION
  Report Type: 
  Country: None (occurrence: None)
  Receive Date: 20110128
  Receipt Date: 20110120
  Transmission Date: 20110831
  Serious: Yes (Other)
  Sender: FDA-Public Use
  Company Number: US-PFIZER INC-2011014923

PATIENT
  Sex: Female

DRUGS (4)
  1. LATANOPROST [Concomitant]
  2. COMBIGAN [Concomitant]
     Dosage: UNK
  3. XALATAN [Suspect]
     Dosage: UNK
  4. ALPHAGAN [Concomitant]
     Dosage: UNK

REACTIONS (3)
  - EYE DISORDER [None]
  - EYE PRURITUS [None]
  - DRY EYE [None]
